FAERS Safety Report 6676889-2 (Version None)
Quarter: 2010Q2

REPORT INFORMATION
  Report Type: 
  Country: None (occurrence: None)
  Receive Date: 20100412
  Receipt Date: 20100402
  Transmission Date: 20101027
  Serious: Yes (Other)
  Sender: FDA-Public Use
  Company Number: JP-ROCHE-696329

PATIENT
  Age: 7 Year
  Sex: Female

DRUGS (1)
  1. ROCEPHIN [Suspect]
     Indication: DRUG USE FOR UNKNOWN INDICATION
     Route: 042
     Dates: start: 20070701, end: 20070701

REACTIONS (2)
  - OBLITERATIVE BRONCHIOLITIS [None]
  - STEVENS-JOHNSON SYNDROME [None]
